FAERS Safety Report 9749983 (Version 1)
Quarter: 2013Q4

REPORT INFORMATION
  Report Type: Spontaneous
  Country: BR (occurrence: BR)
  Receive Date: 20131212
  Receipt Date: 20131212
  Transmission Date: 20140711
  Serious: Yes (Other)
  Sender: FDA-Public Use
  Company Number: PHHY2013BR145729

PATIENT
  Sex: Male

DRUGS (1)
  1. TRILEPTAL [Suspect]
     Dosage: 4 DF, A DAY(ONE AND A HALF TABLET IN THE MORNING, ONE TABLET AT AFTERNOON, ONE AND A HALF AT NIGHT

REACTIONS (1)
  - Epilepsy [Unknown]
